FAERS Safety Report 19010348 (Version 2)
Quarter: 2021Q1

REPORT INFORMATION
  Report Type: Report from Study
  Country: US (occurrence: US)
  Receive Date: 20210315
  Receipt Date: 20210323
  Transmission Date: 20210420
  Serious: Yes (Death, Hospitalization)
  Sender: FDA-Public Use
  Company Number: US-JNJFOC-20210310180

PATIENT
  Sex: Female
  Weight: 50.5 kg

DRUGS (2)
  1. EPOPROSTENOL SODIUM. [Suspect]
     Active Substance: EPOPROSTENOL SODIUM
     Indication: PULMONARY ARTERIAL HYPERTENSION
     Route: 042
  2. AMBRISENTAN [Concomitant]
     Active Substance: AMBRISENTAN

REACTIONS (1)
  - Pulmonary hypertension [Fatal]
